FAERS Safety Report 4632257-6 (Version None)
Quarter: 2005Q2

REPORT INFORMATION
  Report Type: 
  Country: None (occurrence: None)
  Receive Date: 20050411
  Receipt Date: 20050308
  Transmission Date: 20051028
  Serious: Yes (Hospitalization)
  Sender: FDA-Public Use
  Company Number: AU-NOVOPROD-242770

PATIENT
  Age: 58 Year
  Sex: Male

DRUGS (3)
  1. NOVOMIX 30 [Suspect]
     Indication: INSULIN-REQUIRING TYPE II DIABETES MELLITUS
     Dosage: 50 IU, BID
     Dates: start: 20031201
  2. THYROID TAB [Concomitant]
     Indication: THYROID DISORDER
     Route: 048
  3. LIPITOR [Concomitant]
     Indication: BLOOD CHOLESTEROL

REACTIONS (4)
  - DIZZINESS [None]
  - DYSPNOEA [None]
  - HOT FLUSH [None]
  - HYPERHIDROSIS [None]
